FAERS Safety Report 14850075 (Version 2)
Quarter: 2020Q1

REPORT INFORMATION
  Report Type: Spontaneous
  Country: CA (occurrence: CA)
  Receive Date: 20180504
  Receipt Date: 20200109
  Transmission Date: 20200409
  Serious: Yes (Disabling)
  Sender: FDA-Public Use
  Company Number: CA-TEVA-2018-CA-887649

PATIENT
  Age: 62 Year
  Sex: Male
  Weight: 78 kg

DRUGS (5)
  1. QUETIAPINE. [Suspect]
     Active Substance: QUETIAPINE
     Route: 048
  2. QUETIAPINE. [Suspect]
     Active Substance: QUETIAPINE
     Indication: MANIA
     Route: 048
  3. LITHIUM. [Concomitant]
     Active Substance: LITHIUM
  4. BUPROPION. [Concomitant]
     Active Substance: BUPROPION
  5. DIVALPROEX SODIUM. [Concomitant]
     Active Substance: DIVALPROEX SODIUM

REACTIONS (3)
  - Asthenia [Unknown]
  - Abdominal rigidity [Unknown]
  - Abdominal pain upper [Unknown]
